FAERS Safety Report 19913794 (Version 1)
Quarter: 2021Q4

REPORT INFORMATION
  Report Type: Spontaneous
  Country: KR (occurrence: KR)
  Receive Date: 20211004
  Receipt Date: 20211004
  Transmission Date: 20220303
  Serious: Yes (Other)
  Sender: FDA-Public Use
  Company Number: KR-VIIV HEALTHCARE ULC-KR2021APC204583

PATIENT
  Age: 47 Year
  Sex: Female
  Weight: 60.4 kg

DRUGS (10)
  1. KIVEXA [Suspect]
     Active Substance: ABACAVIR SULFATE\LAMIVUDINE
     Indication: HIV infection
     Dosage: 1 MG
     Route: 048
     Dates: start: 20130521
  2. RITONAVIR [Suspect]
     Active Substance: RITONAVIR
     Indication: HIV infection
     Dosage: UNK
     Route: 048
     Dates: start: 20090702
  3. ATENOLOL [Suspect]
     Active Substance: ATENOLOL
     Indication: Secondary hypertension
     Dosage: UNK
     Route: 048
     Dates: start: 20100415
  4. TIZANIDINE [Suspect]
     Active Substance: TIZANIDINE
     Indication: Muscle disorder
     Dosage: UNK
     Route: 048
     Dates: start: 20140106, end: 20140306
  5. ACETAMINOPHEN\TRAMADOL [Suspect]
     Active Substance: ACETAMINOPHEN\TRAMADOL
     Indication: Muscle disorder
     Dosage: UNK
     Route: 048
     Dates: start: 20140106, end: 20140306
  6. BETAMETHASONE [Suspect]
     Active Substance: BETAMETHASONE
     Indication: Muscle disorder
     Dosage: UNK
     Route: 048
     Dates: start: 20130926, end: 20130926
  7. BETAMETHASONE [Suspect]
     Active Substance: BETAMETHASONE
     Dosage: UNK
     Route: 048
     Dates: start: 20140106, end: 20140106
  8. ACECLOFENAC [Suspect]
     Active Substance: ACECLOFENAC
     Indication: Muscle disorder
     Dosage: UNK
     Route: 048
     Dates: start: 20130926, end: 20131003
  9. ACECLOFENAC [Suspect]
     Active Substance: ACECLOFENAC
     Dosage: UNK
     Route: 048
     Dates: start: 20140106, end: 20140306
  10. ACETAMINOPHEN [Concomitant]
     Active Substance: ACETAMINOPHEN
     Indication: Muscle disorder
     Dosage: UNK, EXTENDED RELEASE TABLET
     Route: 048
     Dates: start: 20130926, end: 20130926

REACTIONS (6)
  - Nephrolithiasis [Recovered/Resolved]
  - Myalgia [Not Recovered/Not Resolved]
  - Insomnia [Not Recovered/Not Resolved]
  - Haematuria [Recovered/Resolved]
  - Spinal stenosis [Not Recovered/Not Resolved]
  - Ureterolithiasis [Recovered/Resolved]

NARRATIVE: CASE EVENT DATE: 20130912
